FAERS Safety Report 6558295-4 (Version None)
Quarter: 2010Q1

REPORT INFORMATION
  Report Type: 
  Country: None (occurrence: None)
  Receive Date: 20100126
  Receipt Date: 20100111
  Transmission Date: 20100710
  Serious: Yes (Death)
  Sender: FDA-Public Use
  Company Number: 004617

PATIENT
  Age: 33 Year
  Sex: Male

DRUGS (4)
  1. ACETAMINOPHEN AND HYDROCODONE BITARTRATE [Suspect]
  2. OXYCODONE HCL [Suspect]
  3. BENZODIAZEPAM DERIVATIVES [Suspect]
  4. MEPROBAMATE [Suspect]

REACTIONS (1)
  - DEATH [None]
